FAERS Safety Report 13657440 (Version 2)
Quarter: 2017Q3

REPORT INFORMATION
  Report Type: Report from Study
  Country: US (occurrence: US)
  Receive Date: 20170615
  Receipt Date: 20170831
  Transmission Date: 20171127
  Serious: No
  Sender: FDA-Public Use
  Company Number: US-THERATECHNOLOGIES, INC.-TH-2017-00247

PATIENT

DRUGS (10)
  1. EGRIFTA [Suspect]
     Active Substance: TESAMORELIN
     Indication: LIPODYSTROPHY ACQUIRED
  2. BUPROPION HYDROCHLORIDE XL [Concomitant]
     Active Substance: BUPROPION HYDROCHLORIDE
     Dosage: 300 MG MILLIGRAM(S), UNK
  3. OTHER THERAPEUTIC PRODUCTS [Concomitant]
     Active Substance: UNSPECIFIED INGREDIENT
     Dosage: UNK
  4. IBUPROFEN. [Concomitant]
     Active Substance: IBUPROFEN
     Dosage: 600 MG MILLIGRAM(S), UNK
  5. PRAVASTATIN. [Concomitant]
     Active Substance: PRAVASTATIN
     Dosage: 40 MG MILLIGRAM(S), UNK
  6. TRIAMTERENE AND HYDROCHLOROTHIAZIDE [Concomitant]
     Active Substance: HYDROCHLOROTHIAZIDE\TRIAMTERENE
     Dosage: 37.5-25, UNK
  7. CIALIS [Concomitant]
     Active Substance: TADALAFIL
     Dosage: 5 MG MILLIGRAM(S), UNK
  8. ANDROGEL [Concomitant]
     Active Substance: TESTOSTERONE
     Dosage: 1.62 % PERCENT, UNK
  9. EGRIFTA [Suspect]
     Active Substance: TESAMORELIN
     Indication: HIV INFECTION
     Dosage: 2 MG MILLIGRAM(S), QD
     Route: 058
     Dates: start: 20170324
  10. ESZOPICLONE. [Concomitant]
     Active Substance: ESZOPICLONE
     Dosage: 3 MG MILLIGRAM(S), UNK

REACTIONS (3)
  - Memory impairment [Unknown]
  - Prostate infection [Not Recovered/Not Resolved]
  - Drug dose omission [Unknown]

NARRATIVE: CASE EVENT DATE: 201707
